FAERS Safety Report 23039836 (Version 2)
Quarter: 2023Q4

REPORT INFORMATION
  Report Type: Spontaneous
  Country: FR (occurrence: FR)
  Receive Date: 20231006
  Receipt Date: 20231025
  Transmission Date: 20240109
  Serious: Yes (Other)
  Sender: FDA-Public Use
  Company Number: FR-GSKCCFEMEA-Case-01806487_AE-74987

PATIENT
  Age: 3 Month
  Sex: Male

DRUGS (2)
  1. ACETAMINOPHEN [Suspect]
     Active Substance: ACETAMINOPHEN
     Indication: Pyrexia
     Dosage: UNK
     Dates: start: 202305
  2. BEXSERO [Suspect]
     Active Substance: NEISSERIA MENINGITIDIS GROUP B FHBP FUSION PROTEIN ANTIGEN\NEISSERIA MENINGITIDIS GROUP B NADA PROTE
     Indication: Prophylaxis
     Dosage: SUSPENSION FOR INJECTION IN PRE-FILLED SYRINGE
     Dates: start: 202305

REACTIONS (8)
  - Hyperpyrexia [Recovered/Resolved with Sequelae]
  - Tremor [Recovered/Resolved with Sequelae]
  - Erythema [Recovered/Resolved]
  - Induration [Recovered/Resolved]
  - Agitation [Recovered/Resolved with Sequelae]
  - Feeling hot [Recovered/Resolved]
  - Cyanosis [Recovered/Resolved with Sequelae]
  - Illness [None]

NARRATIVE: CASE EVENT DATE: 20230511
